FAERS Safety Report 26022453 (Version 1)
Quarter: 2025Q4

REPORT INFORMATION
  Report Type: Spontaneous
  Country: US (occurrence: None)
  Receive Date: 20251110
  Receipt Date: 20251110
  Transmission Date: 20260117
  Serious: Yes (Hospitalization)
  Sender: FDA-CTU
  Company Number: None

PATIENT
  Sex: Female

DRUGS (4)
  1. AMBRISENTAN [Suspect]
     Active Substance: AMBRISENTAN
     Indication: Pulmonary arterial hypertension
     Dosage: 10MG DAILY ORAL
     Route: 048
     Dates: start: 20210204
  2. TADALAFIL [Suspect]
     Active Substance: TADALAFIL
     Indication: Pulmonary arterial hypertension
     Dosage: 20 MG TWICE A DAY ORAL ?
     Route: 048
     Dates: start: 20211213
  3. REMODULIN [Suspect]
     Active Substance: TREPROSTINIL
  4. STERILE DILUENT FOR REMODULIN [Concomitant]
     Active Substance: WATER

REACTIONS (2)
  - Flushing [None]
  - Haematological infection [None]
